FAERS Safety Report 17644920 (Version 1)
Quarter: 2020Q2

REPORT INFORMATION
  Report Type: Spontaneous
  Country: US (occurrence: US)
  Receive Date: 20200408
  Receipt Date: 20200408
  Transmission Date: 20200713
  Serious: Yes (Hospitalization)
  Sender: FDA-Public Use
  Company Number: None

PATIENT
  Age: 70 Year
  Sex: Female

DRUGS (1)
  1. ENBREL [Suspect]
     Active Substance: ETANERCEPT
     Indication: RHEUMATOID ARTHRITIS
     Dosage: ?          OTHER FREQUENCY:ONCE EVERY 5 DAYS;?
     Route: 058
     Dates: start: 20180130

REACTIONS (5)
  - Pain in extremity [None]
  - Arthralgia [None]
  - Condition aggravated [None]
  - Ankle operation [None]
  - Upper respiratory tract infection [None]

NARRATIVE: CASE EVENT DATE: 20200313
